FAERS Safety Report 12401930 (Version 2)
Quarter: 2016Q2

REPORT INFORMATION
  Report Type: Spontaneous
  Country: US (occurrence: US)
  Receive Date: 20160525
  Receipt Date: 20160527
  Transmission Date: 20160815
  Serious: No
  Sender: FDA-Public Use
  Company Number: US-SA-2015SA209318

PATIENT
  Age: 84 Year
  Sex: Female

DRUGS (2)
  1. SOLOSTAR [Concomitant]
     Active Substance: DEVICE
     Dates: start: 201511
  2. LANTUS SOLOSTAR [Suspect]
     Active Substance: INSULIN GLARGINE
     Dosage: DOSE- 8-15 UNITS
     Route: 065
     Dates: start: 201511

REACTIONS (5)
  - Memory impairment [Unknown]
  - Hyperglycaemia [Unknown]
  - Injection site pain [Unknown]
  - Hypoglycaemia [Unknown]
  - Drug monitoring procedure not performed [Unknown]
